FAERS Safety Report 6504986-0 (Version None)
Quarter: 2009Q4

REPORT INFORMATION
  Report Type: 
  Country: None (occurrence: None)
  Receive Date: 20091218
  Receipt Date: 20091209
  Transmission Date: 20100525
  Serious: Yes (Other)
  Sender: FDA-Public Use
  Company Number: GB-NOVOPROD-301982

PATIENT
  Age: 51 Year
  Sex: Male
  Weight: 71.5 kg

DRUGS (3)
  1. NOVOSEVEN [Suspect]
     Indication: HAEMORRHAGE PROPHYLAXIS
     Dosage: 90 UG/KG BOLUS
     Route: 042
  2. NOVOSEVEN [Suspect]
     Dosage: 16.5 UG/KG/H CONTINUOUS INFUSION
     Route: 042
  3. FACTOR VIII [Concomitant]
     Dosage: 1 BOLUS

REACTIONS (4)
  - DEVICE FAILURE [None]
  - HAEMARTHROSIS [None]
  - POSTOPERATIVE WOUND INFECTION [None]
  - THERAPEUTIC RESPONSE DECREASED [None]
